FAERS Safety Report 8580945-1 (Version None)
Quarter: 2012Q3

REPORT INFORMATION
  Report Type: 
  Country: None (occurrence: None)
  Receive Date: 20120809
  Receipt Date: 20120807
  Transmission Date: 20120928
  Serious: Yes (Other)
  Sender: FDA-Public Use
  Company Number: US-PFIZER INC-2012192315

PATIENT
  Age: 57 Year
  Sex: Female
  Weight: 66 kg

DRUGS (3)
  1. LIPITOR [Suspect]
     Indication: BLOOD CHOLESTEROL INCREASED
     Dosage: UNK
  2. DIOVAN [Concomitant]
     Indication: HYPERTENSION
     Dosage: UNK
  3. PRISTIQ [Suspect]
     Indication: DEPRESSION
     Dosage: 50 MG, 1X/DAY
     Route: 048
     Dates: start: 20120127

REACTIONS (15)
  - IRRITABILITY [None]
  - POOR QUALITY DRUG ADMINISTERED [None]
  - CLUMSINESS [None]
  - SOMNOLENCE [None]
  - BLOOD PRESSURE INCREASED [None]
  - NASOPHARYNGITIS [None]
  - INFLUENZA LIKE ILLNESS [None]
  - BLOOD CHOLESTEROL INCREASED [None]
  - COLD SWEAT [None]
  - FEELING ABNORMAL [None]
  - DEPRESSION [None]
  - DISORIENTATION [None]
  - ANGER [None]
  - MALAISE [None]
  - DRUG INEFFECTIVE [None]
